FAERS Safety Report 5303448-6 (Version None)
Quarter: 2007Q2

REPORT INFORMATION
  Report Type: 
  Country: None (occurrence: None)
  Receive Date: 20070420
  Receipt Date: 20070413
  Transmission Date: 20071010
  Serious: Yes (Other)
  Sender: FDA-Public Use
  Company Number: US-SANOFI-SYNTHELABO-A03200702609

PATIENT
  Sex: Female

DRUGS (1)
  1. PLAVIX [Suspect]
     Indication: THROMBOSIS
     Route: 048
     Dates: start: 20070409

REACTIONS (12)
  - CHEST DISCOMFORT [None]
  - CHEST PAIN [None]
  - DYSPNOEA [None]
  - EUPHORIC MOOD [None]
  - EYELID PTOSIS [None]
  - HEADACHE [None]
  - HEART RATE INCREASED [None]
  - HEMIPARESIS [None]
  - HYPOAESTHESIA [None]
  - NERVOUSNESS [None]
  - PARAESTHESIA [None]
  - TREMOR [None]
